FAERS Safety Report 5609535-7 (Version None)
Quarter: 2008Q1

REPORT INFORMATION
  Report Type: 
  Country: None (occurrence: None)
  Receive Date: 20080131
  Receipt Date: 20080121
  Transmission Date: 20080703
  Serious: Yes (Death)
  Sender: FDA-Public Use
  Company Number: HQWYE454708AUG07

PATIENT
  Sex: Male

DRUGS (1)
  1. BENEFIX [Suspect]
     Indication: HAEMOPHILIA
     Dosage: ^4000/ 1000 IU AS NEEDED^
     Route: 042

REACTIONS (1)
  - DEATH [None]
